FAERS Safety Report 15462217 (Version 1)
Quarter: 2018Q4

REPORT INFORMATION
  Report Type: Spontaneous
  Country: US (occurrence: US)
  Receive Date: 20181001
  Receipt Date: 20181001
  Transmission Date: 20190204
  Serious: Yes (Hospitalization)
  Sender: FDA-Public Use
  Company Number: None

PATIENT
  Age: 80 Year
  Sex: Female

DRUGS (3)
  1. ESBRIET 267 MG MILLIGRAMS [Concomitant]
  2. PLAVIX [Suspect]
     Active Substance: CLOPIDOGREL BISULFATE
     Indication: IDIOPATHIC PULMONARY FIBROSIS
     Route: 048
     Dates: start: 20180919
  3. ELIQUIS TAB 5MG [Concomitant]

REACTIONS (2)
  - Fatigue [None]
  - Epistaxis [None]

NARRATIVE: CASE EVENT DATE: 20180930
